FAERS Safety Report 7938018-4 (Version None)
Quarter: 2011Q4

REPORT INFORMATION
  Report Type: 
  Country: None (occurrence: None)
  Receive Date: 20111123
  Receipt Date: 20111114
  Transmission Date: 20120403
  Serious: Yes (Other)
  Sender: FDA-Public Use
  Company Number: US-ELI_LILLY_AND_COMPANY-US201111004345

PATIENT
  Age: 35 Year
  Sex: Male

DRUGS (5)
  1. DILANTIN [Concomitant]
     Indication: CONVULSION
  2. ZYPREXA [Suspect]
     Dosage: UNK
     Dates: start: 20111021
  3. ZYPREXA [Suspect]
     Indication: PARANOIA
     Dosage: UNK
     Dates: start: 20110801
  4. GEODON [Concomitant]
     Indication: PARANOIA
     Dosage: 80 MG, BID
     Dates: start: 20111001, end: 20111001
  5. TEGRETOL [Concomitant]

REACTIONS (6)
  - PARANOIA [None]
  - AGITATION [None]
  - HUNGER [None]
  - SOMNOLENCE [None]
  - WEIGHT INCREASED [None]
  - HYPERPHAGIA [None]
